FAERS Safety Report 18028656 (Version 2)
Quarter: 2021Q3

REPORT INFORMATION
  Report Type: Spontaneous
  Country: DE (occurrence: DE)
  Receive Date: 20200716
  Receipt Date: 20210726
  Transmission Date: 20211014
  Serious: Yes (Other)
  Sender: FDA-Public Use
  Company Number: DE-AUROBINDO-AUR-APL-2020-035085

PATIENT
  Age: 30 Year
  Sex: Male

DRUGS (13)
  1. LAMOTRIGINE. [Suspect]
     Active Substance: LAMOTRIGINE
     Indication: EPILEPSY
     Dosage: 400 MILLIGRAM, ONCE A DAY
     Route: 065
  2. VALPROATE [Interacting]
     Active Substance: VALPROIC ACID
     Indication: EPILEPSY
     Dosage: 2000 MILLIGRAM, ONCE A DAY
     Route: 065
  3. PERAMPANEL [Concomitant]
     Active Substance: PERAMPANEL
     Indication: EPILEPSY
     Dosage: 8 MILLIGRAM, ONCE A DAY
     Route: 065
  4. RIVAROXABAN [Interacting]
     Active Substance: RIVAROXABAN
     Indication: DEEP VEIN THROMBOSIS
     Dosage: 20 MILLIGRAM, ONCE A DAY
     Route: 065
  5. XARELTO [Suspect]
     Active Substance: RIVAROXABAN
     Indication: DEEP VEIN THROMBOSIS
  6. RIVAROXABAN [Interacting]
     Active Substance: RIVAROXABAN
     Dosage: 15 MILLIGRAM, ONCE A DAY
     Route: 065
  7. XARELTO [Suspect]
     Active Substance: RIVAROXABAN
     Indication: EPILEPSY
     Dosage: 20 MILLIGRAM, ONCE A DAY
     Route: 048
  8. LAMOTRIGINE. [Suspect]
     Active Substance: LAMOTRIGINE
     Indication: SEIZURE
     Dosage: 2000 MILLIGRAM, ONCE A DAY
     Route: 065
  9. LAMOTRIGINE. [Suspect]
     Active Substance: LAMOTRIGINE
     Indication: PARTIAL SEIZURES
  10. VALPROATE [Interacting]
     Active Substance: VALPROIC ACID
     Indication: PARTIAL SEIZURES
  11. PIPAMPERONE [Suspect]
     Active Substance: PIPAMPERONE
     Indication: EPILEPSY
     Dosage: 20 MILLIGRAM, ONCE A DAY
     Route: 065
  12. VALPROATE [Interacting]
     Active Substance: VALPROIC ACID
     Indication: SEIZURE
     Dosage: 200 MILLIGRAM, ONCE A DAY
     Route: 065
  13. XARELTO [Suspect]
     Active Substance: RIVAROXABAN
     Indication: ANTICOAGULANT THERAPY
     Dosage: 15 MILLIGRAM, ONCE A DAY
     Route: 048

REACTIONS (4)
  - Hyperhomocysteinaemia [Unknown]
  - Anticoagulation drug level decreased [Recovered/Resolved]
  - Drug interaction [Unknown]
  - Deep vein thrombosis [Unknown]
